FAERS Safety Report 5390952-8 (Version None)
Quarter: 2007Q3

REPORT INFORMATION
  Report Type: 
  Country: None (occurrence: None)
  Receive Date: 20070716
  Receipt Date: 20070118
  Transmission Date: 20080115
  Serious: Yes (Hospitalization)
  Sender: FDA-Public Use
  Company Number: MPS1-10638

PATIENT
  Sex: Female
  Weight: 18.1439 kg

DRUGS (4)
  1. ALDURAZYME [Suspect]
     Indication: MUCOPOLYSACCHARIDOSIS I
     Dosage: 7.6 MG QWK IV
     Route: 042
  2. ALDURAZYME [Suspect]
     Indication: MUCOPOLYSACCHARIDOSIS I
     Dosage: 8.7 MG QWK IV
     Route: 042
     Dates: start: 20040609
  3. BENADRYL [Concomitant]
  4. TYLENOL (CAPLET) [Concomitant]

REACTIONS (5)
  - GASTROSTOMY TUBE INSERTION [None]
  - INCREASED BRONCHIAL SECRETION [None]
  - MECHANICAL VENTILATION [None]
  - PNEUMONIA ASPIRATION [None]
  - TRACHEOSTOMY [None]
